FAERS Safety Report 10265245 (Version 1)
Quarter: 2014Q2

REPORT INFORMATION
  Report Type: Spontaneous
  Country: US (occurrence: None)
  Receive Date: 20140625
  Receipt Date: 20140625
  Transmission Date: 20141212
  Serious: Yes (Hospitalization)
  Sender: FDA-Public Use
  Company Number: None

PATIENT
  Age: 86 Year
  Sex: Male

DRUGS (1)
  1. XTANDI 40MG APUS [Suspect]
     Indication: PROSTATE CANCER
     Route: 048
     Dates: start: 20140614

REACTIONS (4)
  - Nausea [None]
  - Vomiting [None]
  - Fatigue [None]
  - Fatigue [None]
